FAERS Safety Report 8020611-4 (Version None)
Quarter: 2012Q1

REPORT INFORMATION
  Report Type: 
  Country: None (occurrence: None)
  Receive Date: 20120103
  Receipt Date: 20111222
  Transmission Date: 20120608
  Serious: Yes (Other)
  Sender: FDA-Public Use
  Company Number: GB-ASTRAZENECA-2011SE77792

PATIENT
  Age: 84 Year
  Sex: Female

DRUGS (2)
  1. FELODIPINE [Suspect]
     Route: 048
  2. LUCENTIS [Suspect]
     Indication: AGE-RELATED MACULAR DEGENERATION
     Route: 065

REACTIONS (1)
  - ATRIAL FIBRILLATION [None]
